FAERS Safety Report 7494292-2 (Version None)
Quarter: 2011Q2

REPORT INFORMATION
  Report Type: 
  Country: None (occurrence: None)
  Receive Date: 20110520
  Receipt Date: 20110509
  Transmission Date: 20111010
  Serious: Yes (Other)
  Sender: FDA-Public Use
  Company Number: US-ACTELION-A-NJ2011-48516

PATIENT

DRUGS (17)
  1. ASPIRIN [Concomitant]
  2. MORPHINE [Concomitant]
  3. PRAVASTATIN [Concomitant]
  4. NEXIUM [Concomitant]
  5. DOCUSATE SODIUM [Concomitant]
  6. OXYGEN [Concomitant]
  7. INSULIN ASPART [Concomitant]
  8. ALDACTONE [Concomitant]
  9. VITAMIN D [Concomitant]
  10. LYRICA [Concomitant]
  11. TRACLEER [Suspect]
     Indication: PULMONARY ARTERIAL HYPERTENSION
     Dosage: 125 MG, BID
     Route: 048
     Dates: start: 20090201, end: 20110420
  12. OXYCODONE HCL [Concomitant]
  13. FLONASE [Concomitant]
  14. XANAX [Concomitant]
  15. TRACLEER [Suspect]
     Dosage: 62.5 MG, BID
     Route: 048
     Dates: start: 20090102, end: 20090201
  16. PREDNISONE [Concomitant]
  17. MUCINEX [Concomitant]

REACTIONS (3)
  - LIVER FUNCTION TEST ABNORMAL [None]
  - SKIN CANCER [None]
  - FLUID RETENTION [None]
